FAERS Safety Report 6956542-8 (Version None)
Quarter: 2010Q3

REPORT INFORMATION
  Report Type: 
  Country: None (occurrence: None)
  Receive Date: 20100830
  Receipt Date: 20100323
  Transmission Date: 20110219
  Serious: Yes (Other)
  Sender: FDA-Public Use
  Company Number: US-AMGEN-QUU401459

PATIENT

DRUGS (2)
  1. NEUPOGEN [Suspect]
     Indication: CHEMOTHERAPY
     Dates: start: 20100319
  2. NEULASTA [Suspect]
     Indication: CHEMOTHERAPY
     Dates: start: 20100313

REACTIONS (2)
  - BONE PAIN [None]
  - DRUG INEFFECTIVE [None]
